FAERS Safety Report 18105347 (Version 2)
Quarter: 2020Q3

REPORT INFORMATION
  Report Type: Report from Study
  Country: FR (occurrence: FR)
  Receive Date: 20200803
  Receipt Date: 20200924
  Transmission Date: 20201103
  Serious: Yes (Hospitalization)
  Sender: FDA-Public Use
  Company Number: FR-INCYTE CORPORATION-2018IN013470

PATIENT

DRUGS (12)
  1. JAKAVI [Suspect]
     Active Substance: RUXOLITINIB
     Dosage: 15 OT
     Route: 048
     Dates: start: 20200317
  2. JAKAVI [Suspect]
     Active Substance: RUXOLITINIB
     Dosage: 25 OT
     Route: 048
     Dates: start: 20191112, end: 202002
  3. PRAZEPAM [Concomitant]
     Active Substance: PRAZEPAM
     Indication: DEPRESSIVE SYMPTOM
     Dosage: 20 OT
     Route: 065
     Dates: start: 2016
  4. JAKAVI [Suspect]
     Active Substance: RUXOLITINIB
     Dosage: 10 OT
     Route: 048
     Dates: start: 20200224, end: 20200316
  5. CACIT VITAMINE D3 [Concomitant]
     Active Substance: CALCIUM CARBONATE\CHOLECALCIFEROL
     Indication: PROPHYLAXIS
     Dosage: 8 OT
     Route: 065
     Dates: start: 20190709
  6. MIRTAZAPINE. [Concomitant]
     Active Substance: MIRTAZAPINE
     Indication: DEPRESSION
     Dosage: UNK
     Route: 065
  7. JAKAVI [Suspect]
     Active Substance: RUXOLITINIB
     Indication: POLYCYTHAEMIA VERA
     Dosage: 20 OT
     Route: 048
     Dates: start: 20171221, end: 20190328
  8. JAKAVI [Suspect]
     Active Substance: RUXOLITINIB
     Dosage: 20 OT
     Route: 048
     Dates: start: 20190524, end: 20191111
  9. LEVOTHYROX [Concomitant]
     Active Substance: LEVOTHYROXINE
     Indication: HYPOTHYROIDISM
     Dosage: 125 OT
     Route: 065
     Dates: start: 2016
  10. HYDREA [Concomitant]
     Active Substance: HYDROXYUREA
     Indication: POLYCYTHAEMIA VERA
     Dosage: 500 OT
     Route: 065
     Dates: start: 20170113
  11. AMITRIPTYLINE [Concomitant]
     Active Substance: AMITRIPTYLINE
     Indication: PRODUCT USED FOR UNKNOWN INDICATION
     Dosage: UNK
     Route: 065
  12. JAKAVI [Suspect]
     Active Substance: RUXOLITINIB
     Dosage: 30 OT
     Route: 048
     Dates: start: 20190329, end: 20190523

REACTIONS (16)
  - Asthenia [Not Recovered/Not Resolved]
  - General physical health deterioration [Recovered/Resolved]
  - Back pain [Unknown]
  - Bone pain [Unknown]
  - Platelet count decreased [Recovering/Resolving]
  - Decreased appetite [Recovered/Resolved]
  - Abdominal pain [Not Recovered/Not Resolved]
  - Pruritus [Not Recovered/Not Resolved]
  - Decreased appetite [Not Recovered/Not Resolved]
  - Dry skin [Not Recovered/Not Resolved]
  - Pain [Recovered/Resolved]
  - Arthralgia [Recovering/Resolving]
  - Drug ineffective [Recovered/Resolved]
  - Erythromelalgia [Recovered/Resolved]
  - Paraesthesia [Not Recovered/Not Resolved]
  - Platelet count decreased [Recovered/Resolved]

NARRATIVE: CASE EVENT DATE: 201801
